FAERS Safety Report 6361498-5 (Version None)
Quarter: 2009Q3

REPORT INFORMATION
  Report Type: 
  Country: None (occurrence: None)
  Receive Date: 20090916
  Receipt Date: 20090916
  Transmission Date: 20100115
  Serious: No
  Sender: FDA-Public Use
  Company Number: None

PATIENT
  Sex: Female
  Weight: 90.7194 kg

DRUGS (1)
  1. NAPROXEN [Suspect]
     Indication: BACK PAIN
     Dosage: 1 PILL 2XADAY
     Dates: start: 20090803, end: 20090819

REACTIONS (4)
  - ABDOMINAL PAIN [None]
  - CONSTIPATION [None]
  - MALAISE [None]
  - NAUSEA [None]
